FAERS Safety Report 4538644-9 (Version None)
Quarter: 2004Q4

REPORT INFORMATION
  Report Type: 
  Country: None (occurrence: None)
  Receive Date: 20041223
  Receipt Date: 20010910
  Transmission Date: 20050328
  Serious: Yes (Hospitalization)
  Sender: FDA-Public Use
  Company Number: 2001-BP-03211

PATIENT
  Age: 50 Year
  Sex: Female

DRUGS (5)
  1. MOBIC [Suspect]
     Indication: RHEUMATOID ARTHRITIS
     Dosage: 15 MG(15 MG, 1 AMM OD) IM
     Route: 030
     Dates: start: 20010421, end: 20010426
  2. ARAVA [Concomitant]
  3. LEDERTREXATE (METHOTREXATE) (TA) [Concomitant]
  4. ULCEN (OMEPRAZOLE) (KA) [Concomitant]
  5. MALIVAL (INDOMETHIACIN) (KA) [Concomitant]

REACTIONS (1)
  - CHOLECYSTITIS [None]
